FAERS Safety Report 10985026 (Version 1)
Quarter: 2015Q1

REPORT INFORMATION
  Report Type: Spontaneous
  Country: US (occurrence: None)
  Receive Date: 20150312
  Receipt Date: 20150312
  Transmission Date: 20150721
  Serious: Yes (Other)
  Sender: FDA-Public Use
  Company Number: 1000052981

PATIENT
  Age: 61 Year
  Sex: Female

DRUGS (11)
  1. LASIX (FUROSEMIDE)(FUROSEMIDE) [Concomitant]
  2. BYSTOLIC (NEBIVOLOL HYDROCHLORIDE) (NEBIVOLOL HYDROCHLORIDE) [Concomitant]
  3. BENICAR (OLMESARTAN MEDOXOMIL) (OLMESARTAN MEDOXOMIL) [Concomitant]
  4. TUDORZA PRESSAIR (ACLIDINIUM BROMIDE) (ACLIDINIUM BROMIDE) [Concomitant]
  5. SAVELLA [Suspect]
     Active Substance: MILNACIPRAN HYDROCHLORIDE
     Indication: FIBROMYALGIA
     Route: 048
     Dates: start: 201311, end: 2013
  6. SAVELLA [Suspect]
     Active Substance: MILNACIPRAN HYDROCHLORIDE
     Route: 048
  7. ASPIRIN (ACETYLSALICYLIC ACID) (ACETYLSALICYLIC ACID) [Concomitant]
     Active Substance: ASPIRIN
  8. TRAZODONE [Concomitant]
     Active Substance: TRAZODONE HYDROCHLORIDE
  9. LUNESTA (ESZOPICLONE) (ESZOPICLONE) [Concomitant]
  10. SAVELLA [Suspect]
     Active Substance: MILNACIPRAN HYDROCHLORIDE
     Indication: ARTHRITIS
     Route: 048
     Dates: start: 201311, end: 2013
  11. CLONAZEPAM. [Concomitant]
     Active Substance: CLONAZEPAM

REACTIONS (6)
  - Pruritus [None]
  - Lacrimation increased [None]
  - Suicidal ideation [None]
  - Alopecia [None]
  - Off label use [None]
  - Hot flush [None]

NARRATIVE: CASE EVENT DATE: 2013
